FAERS Safety Report 6302111-2 (Version None)
Quarter: 2009Q3

REPORT INFORMATION
  Report Type: 
  Country: None (occurrence: None)
  Receive Date: 20090807
  Receipt Date: 20090729
  Transmission Date: 20100115
  Serious: Yes (Hospitalization)
  Sender: FDA-Public Use
  Company Number: JP-ABBOTT-09P-087-0566785-00

PATIENT
  Age: 80 Year
  Sex: Male

DRUGS (1)
  1. LEUPLIN SR FOR INJECTION 11.25 MG [Suspect]
     Indication: PROSTATE CANCER STAGE III
     Route: 058
     Dates: start: 20060815, end: 20080313

REACTIONS (2)
  - MYELODYSPLASTIC SYNDROME [None]
  - PYODERMA GANGRENOSUM [None]
